FAERS Safety Report 25882882 (Version 1)
Quarter: 2025Q4

REPORT INFORMATION
  Report Type: Spontaneous
  Country: US (occurrence: US)
  Receive Date: 20251006
  Receipt Date: 20251006
  Transmission Date: 20260118
  Serious: No
  Sender: ELI LILLY AND COMPANY
  Company Number: US-ELI_LILLY_AND_COMPANY-US202509026037

PATIENT
  Age: 70 Year
  Sex: Male

DRUGS (2)
  1. ZEPBOUND [Suspect]
     Active Substance: TIRZEPATIDE
     Indication: Weight control
     Dosage: 10 MG, WEEKLY (1/W)
     Route: 065
     Dates: start: 20250625
  2. ZEPBOUND [Suspect]
     Active Substance: TIRZEPATIDE
     Dosage: 10 MG, OTHER (EVERY 10 DAYS)
     Route: 065

REACTIONS (2)
  - Inappropriate schedule of product administration [Unknown]
  - Nausea [Recovered/Resolved]
